FAERS Safety Report 12633766 (Version 2)
Quarter: 2016Q3

REPORT INFORMATION
  Report Type: Spontaneous
  Country: FR (occurrence: FR)
  Receive Date: 20160809
  Receipt Date: 20160829
  Transmission Date: 20161109
  Serious: Yes (Hospitalization)
  Sender: FDA-Public Use
  Company Number: FR-PFIZER INC-2016365712

PATIENT
  Age: 60 Year
  Sex: Male

DRUGS (8)
  1. IFOSFAMIDE EG [Suspect]
     Active Substance: IFOSFAMIDE
     Indication: LYMPHOMA
     Dosage: 10400 MG, CYCLIC
     Route: 042
     Dates: start: 20160706, end: 20160706
  2. IFOSFAMIDE EG [Suspect]
     Active Substance: IFOSFAMIDE
     Dosage: 10400 MG ON DAY 2
  3. CARBOPLATINE HOSPIRA [Suspect]
     Active Substance: CARBOPLATIN
     Indication: LYMPHOMA
     Dosage: 750 MG, CYCLIC
     Route: 042
     Dates: start: 20160706, end: 20160706
  4. ETOPOSIDE MYLAN [Suspect]
     Active Substance: ETOPOSIDE
     Indication: LYMPHOMA
     Dosage: 600 MG (200 MG X3), CYCLIC
     Route: 042
     Dates: start: 20160706, end: 20160706
  5. MABTHERA [Suspect]
     Active Substance: RITUXIMAB
     Dosage: 780 MG ON DAY 1
  6. ETOPOSIDE MYLAN [Suspect]
     Active Substance: ETOPOSIDE
     Dosage: 200 MG ON DAY 1 AND 2
  7. CARBOPLATINE HOSPIRA [Suspect]
     Active Substance: CARBOPLATIN
     Dosage: 720 MG ON DAY 2
  8. MABTHERA [Suspect]
     Active Substance: RITUXIMAB
     Indication: LYMPHOMA
     Dosage: 780 MG, CYCLIC
     Route: 042
     Dates: start: 20160706, end: 20160706

REACTIONS (1)
  - Encephalopathy [Recovered/Resolved]

NARRATIVE: CASE EVENT DATE: 20160708
